FAERS Safety Report 5833986-9 (Version None)
Quarter: 2008Q3

REPORT INFORMATION
  Report Type: 
  Country: None (occurrence: None)
  Receive Date: 20080731
  Receipt Date: 20080722
  Transmission Date: 20090109
  Serious: Yes (Hospitalization)
  Sender: FDA-Public Use
  Company Number: 2008AL008792

PATIENT
  Sex: Female

DRUGS (1)
  1. DIGOXIN [Suspect]
     Dosage: PO
     Route: 048

REACTIONS (10)
  - ANXIETY [None]
  - BLINDNESS [None]
  - CONFUSIONAL STATE [None]
  - GENERAL PHYSICAL HEALTH DETERIORATION [None]
  - HEART RATE DECREASED [None]
  - ILL-DEFINED DISORDER [None]
  - INCOHERENT [None]
  - MALAISE [None]
  - PAIN [None]
  - THERAPEUTIC AGENT TOXICITY [None]
